FAERS Safety Report 6510831-X (Version None)
Quarter: 2009Q4

REPORT INFORMATION
  Report Type: 
  Country: None (occurrence: None)
  Receive Date: 20091222
  Receipt Date: 20090113
  Transmission Date: 20100525
  Serious: No
  Sender: FDA-Public Use
  Company Number: US-ASTRAZENECA-2009UW01094

PATIENT
  Age: 22801 Day
  Sex: Female

DRUGS (3)
  1. CRESTOR [Suspect]
     Dosage: UNKNOWN
     Route: 048
  2. POTASSIUM [Concomitant]
  3. LASIX [Concomitant]

REACTIONS (1)
  - OEDEMA PERIPHERAL [None]
